FAERS Safety Report 13693480 (Version 1)
Quarter: 2017Q2

REPORT INFORMATION
  Report Type: Report from Study
  Country: US (occurrence: US)
  Receive Date: 20170627
  Receipt Date: 20170627
  Transmission Date: 20170830
  Serious: Yes (Death, Other)
  Sender: FDA-Public Use
  Company Number: US-REGENERON PHARMACEUTICALS, INC.-2017-15808

PATIENT

DRUGS (4)
  1. EYLEA [Suspect]
     Active Substance: AFLIBERCEPT
     Dosage: UNK; BOTH EYES (OU)
     Dates: start: 20160712, end: 20160712
  2. EYLEA [Suspect]
     Active Substance: AFLIBERCEPT
     Indication: PRODUCT USED FOR UNKNOWN INDICATION
     Dosage: UNK; LEFT EYE (OS)
     Dates: start: 20160119, end: 20160119
  3. EYLEA [Suspect]
     Active Substance: AFLIBERCEPT
     Dosage: UNK; LEFT EYE (OS)
     Dates: start: 20160226, end: 20160226
  4. EYLEA [Suspect]
     Active Substance: AFLIBERCEPT
     Dosage: UNK; LEFT EYE (OS)
     Dates: start: 20160509, end: 20160509

REACTIONS (1)
  - Death [Fatal]

NARRATIVE: CASE EVENT DATE: 20160815
